FAERS Safety Report 6759526-8 (Version None)
Quarter: 2010Q2

REPORT INFORMATION
  Report Type: 
  Country: None (occurrence: None)
  Receive Date: 20100603
  Receipt Date: 20100505
  Transmission Date: 20101027
  Serious: Yes (Other)
  Sender: FDA-Public Use
  Company Number: JP-SOLVAY-00310001266

PATIENT
  Age: 72 Year
  Sex: Male

DRUGS (4)
  1. LUVOX [Suspect]
     Indication: DRUG USE FOR UNKNOWN INDICATION
     Dosage: 75 MILLIGRAM(S) ORAL, ORAL
     Route: 048
  2. SULPIRIDE (SULPIRIDE) [Suspect]
     Indication: DRUG USE FOR UNKNOWN INDICATION
     Dosage: 150 MILLIGRAM(S) ORAL
     Route: 048
  3. TAMSULOSIN HCL [Concomitant]
  4. PROPIVERINE HYDROCHLORIDE (PROPIVERINE HYDROCHLORIDE) [Concomitant]

REACTIONS (7)
  - BLOOD SODIUM DECREASED [None]
  - GAIT DISTURBANCE [None]
  - MEMORY IMPAIRMENT [None]
  - NORMAL PRESSURE HYDROCEPHALUS [None]
  - PAIN IN EXTREMITY [None]
  - PARAESTHESIA [None]
  - RHABDOMYOLYSIS [None]
